FAERS Safety Report 9276173 (Version 1)
Quarter: 2013Q2

REPORT INFORMATION
  Report Type: Spontaneous
  Country: US (occurrence: None)
  Receive Date: 20130501
  Receipt Date: 20130501
  Transmission Date: 20140414
  Serious: Yes (Other)
  Sender: FDA-Public Use
  Company Number: 20130194

PATIENT
  Age: 53 Year
  Sex: Male

DRUGS (2)
  1. CLONIDINE [Suspect]
     Indication: POST-TRAUMATIC STRESS DISORDER
     Dosage: TITRATED TO
  2. SERTRALINE [Concomitant]

REACTIONS (2)
  - Flashback [None]
  - Hallucination, auditory [None]
